FAERS Safety Report 13942889 (Version 3)
Quarter: 2018Q1

REPORT INFORMATION
  Report Type: Report from Study
  Country: JP (occurrence: JP)
  Receive Date: 20170907
  Receipt Date: 20180321
  Transmission Date: 20180508
  Serious: Yes (Other)
  Sender: FDA-Public Use
  Company Number: JP-PFIZER INC-2017384856

PATIENT
  Sex: Female
  Weight: 6.1 kg

DRUGS (9)
  1. SIROLIMUS. [Suspect]
     Active Substance: SIROLIMUS
     Indication: HAEMANGIOMA-THROMBOCYTOPENIA SYNDROME
     Dosage: 0.56 MG, 1X/DAY
     Dates: start: 20160210, end: 20160512
  2. FAMOTIDINE. [Concomitant]
     Active Substance: FAMOTIDINE
     Indication: PROPHYLAXIS
     Dosage: UNK
     Route: 048
     Dates: start: 20160802
  3. FLUCONAZOLE. [Concomitant]
     Active Substance: FLUCONAZOLE
     Indication: PROPHYLAXIS
     Dosage: UNK
     Route: 048
     Dates: start: 20161004, end: 20161202
  4. SIROLIMUS. [Suspect]
     Active Substance: SIROLIMUS
     Dosage: 1.6 MG, 1X/DAY
     Dates: start: 20160913, end: 20170219
  5. PREDONINE /00016203/ [Concomitant]
     Active Substance: PREDNISOLONE SODIUM SUCCINATE
     Indication: INFANTILE HAEMANGIOMA
  6. PREDONINE /00016203/ [Concomitant]
     Active Substance: PREDNISOLONE SODIUM SUCCINATE
     Indication: HAEMANGIOMA-THROMBOCYTOPENIA SYNDROME
     Dosage: UNK
     Route: 048
     Dates: start: 20160802
  7. DAIPHEN [Concomitant]
     Active Substance: SULFAMETHOXAZOLE\TRIMETHOPRIM
     Indication: PROPHYLAXIS
     Dosage: UNK
     Route: 048
  8. ALFAROL [Concomitant]
     Active Substance: ALFACALCIDOL
     Indication: PROPHYLAXIS
     Dosage: UNK
     Route: 048
     Dates: end: 20160802
  9. SIROLIMUS. [Suspect]
     Active Substance: SIROLIMUS
     Indication: INFANTILE HAEMANGIOMA
     Dosage: 0.8 MG, 1X/DAY
     Dates: start: 20160513, end: 20160912

REACTIONS (8)
  - Hypogammaglobulinaemia [Recovered/Resolved]
  - Pharyngitis [Recovered/Resolved]
  - Pharyngitis [Recovered/Resolved]
  - Hyperlipidaemia [Recovered/Resolved]
  - Product use in unapproved indication [Unknown]
  - Eczema [Recovered/Resolved]
  - Cellulitis [Recovered/Resolved]
  - Pharyngitis [Recovered/Resolved]

NARRATIVE: CASE EVENT DATE: 20160615
